FAERS Safety Report 5230310-X (Version None)
Quarter: 2007Q1

REPORT INFORMATION
  Report Type: 
  Country: None (occurrence: None)
  Receive Date: 20070206
  Receipt Date: 20070125
  Transmission Date: 20070707
  Serious: Yes (Other)
  Sender: FDA-Public Use
  Company Number: US-PFIZER INC-2007007381

PATIENT
  Sex: Female
  Weight: 68 kg

DRUGS (27)
  1. CHANTIX [Suspect]
     Indication: SMOKING CESSATION THERAPY
  2. LASIX [Concomitant]
  3. LANOXIN [Concomitant]
  4. COUMADIN [Concomitant]
  5. SOMA [Concomitant]
  6. RISPERDAL [Concomitant]
  7. NEURONTIN [Concomitant]
  8. ALDACTONE [Concomitant]
  9. PREMARIN [Concomitant]
  10. PAXIL [Concomitant]
  11. ALTACE [Concomitant]
  12. LEVOTHYROXINE SODIUM [Concomitant]
  13. AUGMENTIN '125' [Concomitant]
     Indication: PNEUMONIA
     Dates: end: 20070101
  14. ALL OTHER THERAPEUTIC PRODUCTS [Concomitant]
  15. EXTRA STRENGTH TYLENOL [Concomitant]
  16. PREDNISONE [Concomitant]
  17. XOPENEX [Concomitant]
  18. ADVAIR DISKUS 100/50 [Concomitant]
  19. NYSTATIN [Concomitant]
  20. VITAMIN E [Concomitant]
  21. ASCORBIC ACID [Concomitant]
  22. VITAMIN CAP [Concomitant]
  23. CALCIUM MAGNESIUM ZINC [Concomitant]
  24. DEMEROL [Concomitant]
  25. PHENERGAN ^AVENTIS PHARMA^ [Concomitant]
     Route: 048
  26. OXYGEN [Concomitant]
     Dosage: TEXT:3 LITERS-FREQ:ROUND THE CLOCK
  27. NIACIN [Concomitant]

REACTIONS (5)
  - ABASIA [None]
  - ASTHENIA [None]
  - DECREASED APPETITE [None]
  - TREMOR [None]
  - URINARY INCONTINENCE [None]
